FAERS Safety Report 11029617 (Version 2)
Quarter: 2015Q2

REPORT INFORMATION
  Report Type: Spontaneous
  Country: US (occurrence: US)
  Receive Date: 20150415
  Receipt Date: 20150512
  Transmission Date: 20150821
  Serious: Yes (Hospitalization)
  Sender: FDA-Public Use
  Company Number: US-UNITED THERAPEUTICS-UNT-2015-004109

PATIENT
  Age: 55 Year
  Sex: Female
  Weight: 96.6 kg

DRUGS (3)
  1. REMODULIN [Suspect]
     Active Substance: TREPROSTINIL
     Indication: PULMONARY HYPERTENSION
     Dosage: 0.126 ?G/KG, CONTINUING
     Route: 041
     Dates: start: 20130519
  2. REMODULIN [Suspect]
     Active Substance: TREPROSTINIL
     Dosage: 0.126 ?G/KG, CONTINUING
     Route: 041
  3. REVATIO [Concomitant]
     Active Substance: SILDENAFIL CITRATE
     Indication: PRODUCT USED FOR UNKNOWN INDICATION

REACTIONS (3)
  - Dyspnoea [Unknown]
  - Generalised oedema [Unknown]
  - Device issue [Unknown]

NARRATIVE: CASE EVENT DATE: 20150407
